FAERS Safety Report 4421299-1 (Version None)
Quarter: 2004Q3

REPORT INFORMATION
  Report Type: 
  Country: None (occurrence: None)
  Receive Date: 20040804
  Receipt Date: 20040731
  Transmission Date: 20050211
  Serious: Yes (Life-Threatening, Hospitalization)
  Sender: FDA-Public Use
  Company Number: 24674

PATIENT
  Age: 41 Year
  Sex: Female

DRUGS (2)
  1. FLECAINIDE ACETATE [Suspect]
     Indication: ATRIAL FLUTTER
     Dosage: ORAL
     Route: 048
     Dates: start: 20010924, end: 20040627
  2. CORDARONE [Concomitant]

REACTIONS (8)
  - CARDIAC ARREST [None]
  - CONVULSION [None]
  - ELECTROCARDIOGRAM QRS COMPLEX PROLONGED [None]
  - HAEMODIALYSIS [None]
  - OVERDOSE [None]
  - RENAL FAILURE [None]
  - RESPIRATORY ARREST [None]
  - VENTRICULAR TACHYCARDIA [None]
